FAERS Safety Report 8213530-1 (Version None)
Quarter: 2012Q1

REPORT INFORMATION
  Report Type: 
  Country: None (occurrence: None)
  Receive Date: 20120315
  Receipt Date: 20120305
  Transmission Date: 20120608
  Serious: Yes (Other)
  Sender: FDA-Public Use
  Company Number: US-RB-038219-12

PATIENT
  Sex: Female

DRUGS (2)
  1. SUBOXONE [Suspect]
     Indication: DRUG DEPENDENCE
     Dosage: DOSE UNKNOWN
     Route: 064
     Dates: start: 20110401, end: 20111227
  2. CELEXA [Concomitant]
     Indication: ANXIETY
     Dosage: UNKNOWN DOSE
     Route: 064
     Dates: end: 20111227

REACTIONS (2)
  - PREMATURE BABY [None]
  - FOETAL EXPOSURE DURING PREGNANCY [None]
